FAERS Safety Report 4658415-2 (Version None)
Quarter: 2005Q2

REPORT INFORMATION
  Report Type: 
  Country: None (occurrence: None)
  Receive Date: 20050510
  Receipt Date: 20050510
  Transmission Date: 20051028
  Serious: Yes (Other)
  Sender: FDA-Public Use
  Company Number: None

PATIENT
  Age: 32 Year
  Sex: Female
  Weight: 84.8226 kg

DRUGS (1)
  1. LEVOTHROID [Suspect]
     Indication: HYPOTHYROIDISM
     Dosage: 0.075 TQD
     Dates: start: 20050505

REACTIONS (4)
  - CONVULSION [None]
  - DYSKINESIA [None]
  - INSOMNIA [None]
  - TREMOR [None]
